FAERS Safety Report 5118854-2 (Version None)
Quarter: 2006Q3

REPORT INFORMATION
  Report Type: 
  Country: None (occurrence: None)
  Receive Date: 20060927
  Receipt Date: 20060914
  Transmission Date: 20061208
  Serious: Yes (Hospitalization, Other)
  Sender: FDA-Public Use
  Company Number: 2006111458

PATIENT
  Age: 53 Year
  Sex: Male
  Weight: 106.1417 kg

DRUGS (1)
  1. FLAGYL [Suspect]
     Dosage: 500 MG, ORAL
     Route: 048
     Dates: start: 20060827, end: 20060904

REACTIONS (3)
  - CONVULSION [None]
  - DISTURBANCE IN ATTENTION [None]
  - PSYCHOTIC DISORDER [None]
